FAERS Safety Report 18708409 (Version 9)
Quarter: 2022Q3

REPORT INFORMATION
  Report Type: Report from Study
  Country: CA (occurrence: CA)
  Receive Date: 20210106
  Receipt Date: 20220912
  Transmission Date: 20221027
  Serious: Yes (Hospitalization, Other)
  Sender: FDA-Public Use
  Company Number: NVSC2020CA346768

PATIENT
  Age: 51 Year
  Sex: Male

DRUGS (4)
  1. SANDOSTATIN LAR DEPOT [Suspect]
     Active Substance: OCTREOTIDE ACETATE
     Indication: Acromegaly
     Dosage: 20 MG, QMO
     Route: 030
     Dates: start: 20201212
  2. SANDOSTATIN LAR DEPOT [Suspect]
     Active Substance: OCTREOTIDE ACETATE
  3. SANDOSTATIN LAR DEPOT [Suspect]
     Active Substance: OCTREOTIDE ACETATE
  4. DOSTINEX [Concomitant]
     Active Substance: CABERGOLINE
     Indication: Product used for unknown indication
     Dosage: UNK
     Route: 048

REACTIONS (29)
  - Cardiac disorder [Unknown]
  - Heart rate irregular [Unknown]
  - Intellectual disability [Unknown]
  - Mental impairment [Unknown]
  - Osteoporosis [Unknown]
  - Stress [Unknown]
  - Withdrawal syndrome [Unknown]
  - Limb injury [Unknown]
  - Gait disturbance [Unknown]
  - Pain [Unknown]
  - Malaise [Unknown]
  - Asthma [Unknown]
  - Rotator cuff syndrome [Unknown]
  - Tremor [Unknown]
  - Pain in extremity [Unknown]
  - Scoliosis [Unknown]
  - Impaired healing [Unknown]
  - Post-traumatic stress disorder [Unknown]
  - Anxiety [Unknown]
  - Depression [Unknown]
  - Spinal deformity [Unknown]
  - Musculoskeletal stiffness [Unknown]
  - Muscle spasms [Unknown]
  - Arthralgia [Unknown]
  - Nerve injury [Unknown]
  - Headache [Unknown]
  - Dyspnoea [Unknown]
  - Asthenia [Unknown]
  - Drug ineffective [Unknown]

NARRATIVE: CASE EVENT DATE: 20210901
